FAERS Safety Report 8028881-3 (Version None)
Quarter: 2012Q1

REPORT INFORMATION
  Report Type: 
  Country: None (occurrence: None)
  Receive Date: 20120106
  Receipt Date: 20120104
  Transmission Date: 20120608
  Serious: Yes (Death)
  Sender: FDA-Public Use
  Company Number: US-GLAXOSMITHKLINE-A0960273A

PATIENT
  Age: 63 Year
  Sex: Male

DRUGS (9)
  1. VOTRIENT [Suspect]
     Dosage: 800MG PER DAY
     Route: 048
     Dates: start: 20111202, end: 20111211
  2. AMBIEN [Concomitant]
  3. GLUCOSAMINE [Concomitant]
  4. VITAMIN D [Concomitant]
  5. METOPROLOL SUCCINATE [Concomitant]
  6. MULTI-VITAMIN [Concomitant]
  7. PROPECIA [Concomitant]
  8. MEGESTROL ACETATE [Concomitant]
  9. VITAMIN E [Concomitant]

REACTIONS (1)
  - DEATH [None]
